FAERS Safety Report 20817764 (Version 1)
Quarter: 2022Q2

REPORT INFORMATION
  Report Type: Spontaneous
  Country: NL (occurrence: NL)
  Receive Date: 20220512
  Receipt Date: 20220512
  Transmission Date: 20220720
  Serious: No
  Sender: FDA-Public Use
  Company Number: NL-ALKEM LABORATORIES LIMITED-NL-ALKEM-2022-02361

PATIENT
  Age: 5 Year
  Sex: Female

DRUGS (1)
  1. PREGABALIN [Suspect]
     Active Substance: PREGABALIN
     Indication: Product used for unknown indication
     Dosage: 300 MILLIGRAM
     Route: 065

REACTIONS (5)
  - Overdose [Unknown]
  - Toxicity to various agents [Unknown]
  - Dysarthria [Unknown]
  - Hyperhidrosis [Unknown]
  - Abdominal pain upper [Unknown]
